FAERS Safety Report 8010669-0 (Version None)
Quarter: 2011Q4

REPORT INFORMATION
  Report Type: 
  Country: None (occurrence: None)
  Receive Date: 20111228
  Receipt Date: 20111227
  Transmission Date: 20120403
  Serious: Yes (Other)
  Sender: FDA-Public Use
  Company Number: PHEH2010US01808

PATIENT
  Sex: Female

DRUGS (10)
  1. ZOMETA [Suspect]
     Dates: start: 20040501, end: 20061001
  2. ARIMIDEX [Concomitant]
     Dosage: 1 MG, QD
  3. ISOSORBIDE DINITRATE [Concomitant]
     Dosage: 20 MG, BID
  4. TOPROL-XL [Concomitant]
     Dosage: 25 MG, QD
  5. PRAVACHOL [Concomitant]
     Dosage: 20 MG, QD
  6. ASPIRIN [Concomitant]
     Dosage: 325 MG, QD
  7. CALCIUM ACETATE [Concomitant]
  8. DIOVAN [Concomitant]
     Dosage: 160 MG, QD
  9. ZETIA [Concomitant]
     Dosage: 10 MG, QD
  10. OMEPRAZOLE [Concomitant]
     Dosage: 20 MG, QD

REACTIONS (13)
  - PAIN [None]
  - TOOTH LOSS [None]
  - HYPERTENSION [None]
  - DISABILITY [None]
  - MUSCLE SPASMS [None]
  - STOMATITIS [None]
  - OSTEONECROSIS OF JAW [None]
  - INJURY [None]
  - HYPERLIPIDAEMIA [None]
  - ANXIETY [None]
  - BONE LESION [None]
  - QUALITY OF LIFE DECREASED [None]
  - OSTEOARTHRITIS [None]
